FAERS Safety Report 15207522 (Version 1)
Quarter: 2018Q3

REPORT INFORMATION
  Report Type: Spontaneous
  Country: US (occurrence: US)
  Receive Date: 20180727
  Receipt Date: 20180727
  Transmission Date: 20181010
  Serious: No
  Sender: FDA-Public Use
  Company Number: US-SA-2018SA201634

PATIENT
  Sex: Female

DRUGS (1)
  1. THYROGEN [Suspect]
     Active Substance: THYROTROPIN ALFA
     Route: 030

REACTIONS (5)
  - Allergic reaction to excipient [Unknown]
  - Nausea [Unknown]
  - Headache [Unknown]
  - Diarrhoea [Unknown]
  - Abdominal pain upper [Unknown]
